FAERS Safety Report 9115967 (Version 1)
Quarter: 2013Q1

REPORT INFORMATION
  Report Type: Spontaneous
  Country: US (occurrence: US)
  Receive Date: 20130225
  Receipt Date: 20130225
  Transmission Date: 20140127
  Serious: Yes (Other)
  Sender: FDA-Public Use
  Company Number: US-BAYER-2013-021692

PATIENT
  Sex: Female

DRUGS (1)
  1. ASP SEVERE SINUS CONGESTION ALLERGY + COUGH LG [Suspect]
     Route: 048

REACTIONS (2)
  - Choking [None]
  - Foreign body [Recovered/Resolved]
